FAERS Safety Report 4873854-2 (Version None)
Quarter: 2006Q1

REPORT INFORMATION
  Report Type: 
  Country: None (occurrence: None)
  Receive Date: 20060103
  Receipt Date: 20060103
  Transmission Date: 20060701
  Serious: Yes (Life-Threatening, Hospitalization)
  Sender: FDA-Public Use
  Company Number: None

PATIENT
  Sex: Female
  Weight: 82.1011 kg

DRUGS (1)
  1. ORTHO EVRA [Suspect]
     Indication: CONTRACEPTION
     Dosage: ONCE A WEEK TRANSDERMAL
     Route: 062
     Dates: start: 20051108, end: 20051116

REACTIONS (5)
  - BREATH SOUNDS ABNORMAL [None]
  - DIZZINESS [None]
  - PLEURAL EFFUSION [None]
  - PLEURISY [None]
  - PULMONARY EMBOLISM [None]
